FAERS Safety Report 21794355 (Version 2)
Quarter: 2023Q1

REPORT INFORMATION
  Report Type: Spontaneous
  Country: DE (occurrence: DE)
  Receive Date: 20221229
  Receipt Date: 20230111
  Transmission Date: 20230417
  Serious: Yes (Hospitalization, Other)
  Sender: FDA-Public Use
  Company Number: DE-002147023-NVSC2022DE298000

PATIENT
  Sex: Male

DRUGS (2)
  1. LUCENTIS [Suspect]
     Active Substance: RANIBIZUMAB
     Indication: Retinal vein occlusion
     Route: 065
  2. LUCENTIS [Suspect]
     Active Substance: RANIBIZUMAB
     Indication: Cystoid macular oedema

REACTIONS (3)
  - Mantle cell lymphoma stage I [Unknown]
  - Lymphadenopathy [Unknown]
  - Penetrating aortic ulcer [Unknown]

NARRATIVE: CASE EVENT DATE: 20210301
